FAERS Safety Report 6369941-2 (Version None)
Quarter: 2009Q3

REPORT INFORMATION
  Report Type: 
  Country: None (occurrence: None)
  Receive Date: 20090923
  Receipt Date: 20070316
  Transmission Date: 20100115
  Serious: Yes (Other)
  Sender: FDA-Public Use
  Company Number: US-ASTRAZENECA-2006UW07723

PATIENT
  Age: 9143 Day
  Sex: Female
  Weight: 83 kg

DRUGS (23)
  1. SEROQUEL [Suspect]
     Indication: ANXIETY
     Dosage: 100 -975 MG
     Route: 048
     Dates: start: 20021125
  2. SEROQUEL [Suspect]
     Indication: DEPRESSION
     Dosage: 100 -975 MG
     Route: 048
     Dates: start: 20021125
  3. SEROQUEL [Suspect]
     Indication: SLEEP DISORDER
     Dosage: 100 -975 MG
     Route: 048
     Dates: start: 20021125
  4. CLONIDINE [Concomitant]
     Dosage: 0.1-0.4 MG
     Route: 048
  5. BENADRYL [Concomitant]
     Route: 048
  6. WELLBUTRIN [Concomitant]
     Dosage: 200-300 MG
     Route: 048
  7. GLYBURIDE [Concomitant]
     Route: 065
  8. METFORMIN HCL [Concomitant]
     Dosage: 250-500 MG
     Route: 048
  9. ETODOLAC [Concomitant]
     Route: 065
  10. DEPAKOTE [Concomitant]
     Dosage: 400-1000 MG
     Route: 048
  11. GEODON [Concomitant]
     Dosage: 20-60 MG
     Route: 048
  12. ATIVAN [Concomitant]
     Dosage: 1-3 MG
     Route: 048
  13. METHADONE HCL [Concomitant]
     Dosage: 150-165 MG
     Route: 048
  14. VISTARIL [Concomitant]
     Dosage: 50-200 MG
     Route: 048
  15. HYDROCODONE [Concomitant]
     Route: 048
  16. IBUPROFEN [Concomitant]
     Route: 048
  17. LUNESTA [Concomitant]
     Route: 048
  18. HYDRALAZINE HCL [Concomitant]
     Indication: PRURITUS
     Route: 065
  19. FLEXERIL [Concomitant]
     Route: 065
  20. ROBAXIN [Concomitant]
     Indication: BACK PAIN
     Dosage: 750 MG 1 TO 2 QID
     Route: 065
  21. PAXIL [Concomitant]
     Route: 065
  22. BUSPAR [Concomitant]
     Route: 048
  23. AMBIEN [Concomitant]
     Route: 048

REACTIONS (46)
  - ABDOMINAL PAIN [None]
  - AGITATION [None]
  - ARTHRALGIA [None]
  - BACK PAIN [None]
  - BIPOLAR DISORDER [None]
  - BRONCHITIS [None]
  - CHILLS [None]
  - CONTUSION [None]
  - DIARRHOEA [None]
  - DRUG DEPENDENCE [None]
  - DRUG EXPOSURE DURING PREGNANCY [None]
  - DRUG WITHDRAWAL SYNDROME [None]
  - ECZEMA [None]
  - FACTITIOUS DISORDER [None]
  - FATIGUE [None]
  - GASTRITIS [None]
  - GINGIVITIS [None]
  - GROIN PAIN [None]
  - HYPERGLYCAEMIA [None]
  - HYPOALBUMINAEMIA [None]
  - HYPOKALAEMIA [None]
  - INSOMNIA [None]
  - JOINT SPRAIN [None]
  - MENTAL DISABILITY [None]
  - MUSCLE DISORDER [None]
  - MUSCLE SPASMS [None]
  - MUSCLE STRAIN [None]
  - MUSCLE TWITCHING [None]
  - OBESITY [None]
  - OVERDOSE [None]
  - PAIN [None]
  - PAIN IN EXTREMITY [None]
  - PRURITUS [None]
  - SINUSITIS [None]
  - SUBSTANCE ABUSE [None]
  - SUICIDAL IDEATION [None]
  - TENDONITIS [None]
  - TOOTH ABSCESS [None]
  - TOOTH FRACTURE [None]
  - TOOTHACHE [None]
  - TYPE 2 DIABETES MELLITUS [None]
  - UPPER RESPIRATORY TRACT INFECTION [None]
  - URINARY TRACT INFECTION [None]
  - URTICARIA CHRONIC [None]
  - VAGINAL HAEMORRHAGE [None]
  - VOMITING [None]
